FAERS Safety Report 13966118 (Version 1)
Quarter: 2017Q3

REPORT INFORMATION
  Report Type: Spontaneous
  Country: BR (occurrence: BR)
  Receive Date: 20170913
  Receipt Date: 20170913
  Transmission Date: 20171128
  Serious: Yes (Death, Life-Threatening, Hospitalization, Other)
  Sender: FDA-Public Use
  Company Number: BR-PFIZER INC-2017SE34025

PATIENT
  Age: 57 Year
  Sex: Male

DRUGS (4)
  1. MEROPENEM. [Suspect]
     Active Substance: MEROPENEM
     Indication: PSEUDOMONAS INFECTION
     Dosage: 1000 MG, 2X/DAY
     Route: 042
     Dates: start: 2014, end: 2014
  2. TEICOPLANIN [Suspect]
     Active Substance: TEICOPLANIN
     Indication: PSEUDOMONAS INFECTION
     Dosage: 600 MG, 1X/DAY
     Route: 042
     Dates: start: 2014
  3. MEROPENEM. [Suspect]
     Active Substance: MEROPENEM
     Dosage: 500 MG, 2X/DAY
     Route: 042
  4. TIGECYCLINE. [Concomitant]
     Active Substance: TIGECYCLINE
     Indication: PSEUDOMONAS INFECTION
     Dosage: 50 MG, 2X/DAY
     Route: 065

REACTIONS (7)
  - Cardio-respiratory arrest [Fatal]
  - Urinary tract infection [Fatal]
  - Myocardial infarction [Fatal]
  - Pathogen resistance [Fatal]
  - Sepsis [Fatal]
  - Condition aggravated [Fatal]
  - Drug ineffective [Fatal]

NARRATIVE: CASE EVENT DATE: 2014
